FAERS Safety Report 7050275-8 (Version None)
Quarter: 2010Q4

REPORT INFORMATION
  Report Type: 
  Country: None (occurrence: None)
  Receive Date: 20101018
  Receipt Date: 20101008
  Transmission Date: 20110411
  Serious: Yes (Other)
  Sender: FDA-Public Use
  Company Number: ZA-ABBOTT-10P-143-0677136-00

PATIENT
  Age: 40 Year
  Sex: Male

DRUGS (2)
  1. EPILIM CR [Suspect]
     Indication: EPILEPSY
     Route: 048
  2. EPILIM CR [Suspect]
     Route: 048

REACTIONS (4)
  - DRUG LEVEL DECREASED [None]
  - EPILEPSY [None]
  - MEDICATION RESIDUE [None]
  - PRODUCT QUALITY ISSUE [None]
